FAERS Safety Report 24614764 (Version 1)
Quarter: 2024Q4

REPORT INFORMATION
  Report Type: Spontaneous
  Country: MA (occurrence: MA)
  Receive Date: 20241113
  Receipt Date: 20241113
  Transmission Date: 20250115
  Serious: Yes (Death)
  Sender: PFIZER
  Company Number: MA-PFIZER INC-PV202400147567

PATIENT
  Sex: Female

DRUGS (1)
  1. SUTENT [Suspect]
     Active Substance: SUNITINIB MALATE
     Dosage: 12.5 MG
     Route: 048
     Dates: start: 202201

REACTIONS (1)
  - Death [Fatal]

NARRATIVE: CASE EVENT DATE: 20221219
